FAERS Safety Report 8401835-0 (Version None)
Quarter: 2012Q2

REPORT INFORMATION
  Report Type: 
  Country: None (occurrence: None)
  Receive Date: 20120601
  Receipt Date: 20120529
  Transmission Date: 20120825
  Serious: Yes (Other)
  Sender: FDA-Public Use
  Company Number: US-JNJFOC-20120517073

PATIENT
  Sex: Female

DRUGS (2)
  1. NUCYNTA [Suspect]
     Indication: FIBROMYALGIA
     Dosage: EVERY 12 HOURS ORAL
     Route: 048
     Dates: start: 20120101
  2. AN UNKNOWN MEDICATION [Concomitant]
     Indication: MUSCLE DISORDER
     Route: 065

REACTIONS (4)
  - HOMICIDAL IDEATION [None]
  - MALAISE [None]
  - HYPERHIDROSIS [None]
  - DEPRESSION [None]
